FAERS Safety Report 6152297-8 (Version None)
Quarter: 2009Q2

REPORT INFORMATION
  Report Type: 
  Country: None (occurrence: None)
  Receive Date: 20090410
  Receipt Date: 20090406
  Transmission Date: 20091009
  Serious: Yes (Other)
  Sender: FDA-Public Use
  Company Number: US-MERCK-0902USA02714

PATIENT
  Age: 77 Year
  Sex: Female
  Weight: 56 kg

DRUGS (10)
  1. ZETIA [Suspect]
     Indication: LIPIDS INCREASED
     Route: 048
     Dates: start: 20060201, end: 20090201
  2. ZETIA [Suspect]
     Route: 048
     Dates: start: 20090301
  3. AMBIEN [Concomitant]
     Route: 065
  4. OXYCONTIN [Concomitant]
     Route: 065
  5. VICODIN [Concomitant]
     Route: 065
  6. AMITIZA [Concomitant]
     Route: 065
  7. LYRICA [Concomitant]
     Route: 065
  8. CYMBALTA [Concomitant]
     Route: 065
  9. SYNTHROID [Concomitant]
     Route: 065
  10. VITAMIN D (UNSPECIFIED) [Concomitant]
     Route: 065

REACTIONS (4)
  - ASTHENIA [None]
  - HYPOAESTHESIA [None]
  - LUNG NEOPLASM MALIGNANT [None]
  - PAIN IN EXTREMITY [None]
